FAERS Safety Report 9999171 (Version 1)
Quarter: 2014Q1

REPORT INFORMATION
  Report Type: Report from Study
  Country: US (occurrence: US)
  Receive Date: 20140312
  Receipt Date: 20140312
  Transmission Date: 20141002
  Serious: Yes (Other)
  Sender: FDA-Public Use
  Company Number: US-JNJFOC-20140303706

PATIENT
  Sex: 0

DRUGS (1)
  1. TOPAMAX [Suspect]
     Indication: PRODUCT USED FOR UNKNOWN INDICATION
     Route: 048

REACTIONS (10)
  - Monoclonal gammopathy [Unknown]
  - Mixed connective tissue disease [Unknown]
  - Fibromyalgia [Unknown]
  - Myalgia [Unknown]
  - Neuropathy peripheral [Unknown]
  - Arthralgia [Unknown]
  - Back pain [Unknown]
  - Sleep apnoea syndrome [Unknown]
  - Myositis [Unknown]
  - Chronic sinusitis [Unknown]
